FAERS Safety Report 18212936 (Version 4)
Quarter: 2021Q1

REPORT INFORMATION
  Report Type: Spontaneous
  Country: DE (occurrence: DE)
  Receive Date: 20200831
  Receipt Date: 20210208
  Transmission Date: 20210419
  Serious: Yes (Other)
  Sender: FDA-Public Use
  Company Number: DE-MYLANLABS-2020M1072422

PATIENT
  Sex: Male

DRUGS (2)
  1. FASTJEKT [Suspect]
     Active Substance: EPINEPHRINE
     Dosage: UNK
  2. FASTJEKT [Suspect]
     Active Substance: EPINEPHRINE
     Indication: PRODUCT USED FOR UNKNOWN INDICATION
     Dosage: UNK

REACTIONS (2)
  - Device failure [Unknown]
  - Expired product administered [Unknown]
